FAERS Safety Report 21958289 (Version 2)
Quarter: 2023Q1

REPORT INFORMATION
  Report Type: Spontaneous
  Country: US (occurrence: US)
  Receive Date: 20230206
  Receipt Date: 20230213
  Transmission Date: 20230418
  Serious: No
  Sender: FDA-Public Use
  Company Number: US-PFIZER INC-202300049486

PATIENT
  Age: 64 Year
  Sex: Male

DRUGS (1)
  1. MEDROL [Suspect]
     Active Substance: METHYLPREDNISOLONE
     Indication: Rheumatoid arthritis
     Dosage: UNK (6 TABLETS, THEN 5, THEN 4, THEN 3, THEN 2, THEN 1 TABLET)

REACTIONS (5)
  - Drug ineffective [Unknown]
  - Breakthrough pain [Unknown]
  - Anxiety [Unknown]
  - Post-traumatic stress disorder [Unknown]
  - Arthropathy [Unknown]
